FAERS Safety Report 5734785-9 (Version None)
Quarter: 2008Q2

REPORT INFORMATION
  Report Type: 
  Country: None (occurrence: None)
  Receive Date: 20080512
  Receipt Date: 20080506
  Transmission Date: 20081010
  Serious: Yes (Other)
  Sender: FDA-Public Use
  Company Number: PHRM2008FR01475

PATIENT
  Age: 42 Year
  Sex: Female

DRUGS (2)
  1. ZOMETA [Suspect]
     Indication: FIBROUS DYSPLASIA OF BONE
     Route: 042
     Dates: start: 20080409
  2. DURAGESIC-100 [Concomitant]
     Dates: start: 20080301, end: 20080505

REACTIONS (5)
  - DEPRESSED MOOD [None]
  - DEPRESSION [None]
  - HOT FLUSH [None]
  - INTENTIONAL DRUG MISUSE [None]
  - NAUSEA [None]
